FAERS Safety Report 6664137-9 (Version None)
Quarter: 2010Q2

REPORT INFORMATION
  Report Type: 
  Country: None (occurrence: None)
  Receive Date: 20100401
  Receipt Date: 20100325
  Transmission Date: 20101027
  Serious: Yes (Other)
  Sender: FDA-Public Use
  Company Number: B0643008A

PATIENT
  Sex: Male

DRUGS (2)
  1. FORTUM [Suspect]
     Dosage: 1G TWICE PER DAY
     Route: 042
     Dates: start: 20100305, end: 20100310
  2. CIPROFLOXACIN HCL [Concomitant]
     Dosage: 500MG THREE TIMES PER DAY
     Route: 065
     Dates: start: 20100305

REACTIONS (2)
  - PRURITUS [None]
  - RASH MACULO-PAPULAR [None]
